FAERS Safety Report 24904801 (Version 2)
Quarter: 2025Q1

REPORT INFORMATION
  Report Type: Spontaneous
  Country: US (occurrence: US)
  Receive Date: 20250130
  Receipt Date: 20250214
  Transmission Date: 20250408
  Serious: Yes (Other)
  Sender: AVERITAS
  Company Number: US-GRUNENTHAL-2025-101728

PATIENT
  Age: 90 Year
  Sex: Male

DRUGS (1)
  1. QUTENZA [Suspect]
     Active Substance: CAPSAICIN
     Indication: Post herpetic neuralgia
     Route: 061
     Dates: start: 20250127, end: 20250127

REACTIONS (4)
  - Hypertensive crisis [Recovering/Resolving]
  - Application site pain [Recovering/Resolving]
  - Chest pain [Recovering/Resolving]
  - Pain in extremity [Recovered/Resolved]

NARRATIVE: CASE EVENT DATE: 20250127
